FAERS Safety Report 7270006-6 (Version None)
Quarter: 2011Q1

REPORT INFORMATION
  Report Type: 
  Country: None (occurrence: None)
  Receive Date: 20110202
  Receipt Date: 20110127
  Transmission Date: 20110831
  Serious: No
  Sender: FDA-Public Use
  Company Number: PY-ROCHE-755862

PATIENT
  Sex: Female
  Weight: 60 kg

DRUGS (3)
  1. DROSPIRENONE AND ETHINYL ESTRADIOL [Concomitant]
     Indication: CONTRACEPTION
     Route: 048
     Dates: end: 20110124
  2. CIPROTERONE [Concomitant]
     Indication: ANTIANDROGEN THERAPY
     Route: 048
     Dates: end: 20101227
  3. ISOTRETINOIN [Suspect]
     Indication: ACNE
     Route: 048
     Dates: start: 20101223, end: 20110124

REACTIONS (2)
  - NO ADVERSE EVENT [None]
  - PREGNANCY [None]
